FAERS Safety Report 9394287 (Version 1)
Quarter: 2013Q3

REPORT INFORMATION
  Report Type: Report from Study
  Country: MX (occurrence: MX)
  Receive Date: 20130711
  Receipt Date: 20130711
  Transmission Date: 20140515
  Serious: Yes (Death)
  Sender: FDA-Public Use
  Company Number: MX-ROCHE-1242711

PATIENT
  Sex: Male

DRUGS (1)
  1. XELODA [Suspect]
     Indication: COLORECTAL CANCER
     Dosage: DURING 14 DAY BY 7 DAYS  REST
     Route: 048
     Dates: start: 20120501, end: 20120514

REACTIONS (6)
  - Death [Fatal]
  - Decreased appetite [Unknown]
  - Weight decreased [Unknown]
  - Emotional disorder [Unknown]
  - Haemoglobin decreased [Unknown]
  - Depressed mood [Unknown]
